FAERS Safety Report 17690831 (Version 2)
Quarter: 2020Q2

REPORT INFORMATION
  Report Type: Report from Study
  Country: None (occurrence: US)
  Receive Date: 20200422
  Receipt Date: 20200522
  Transmission Date: 20200714
  Serious: Yes (Other)
  Sender: FDA-Public Use
  Company Number: US-ABBVIE-19K-163-2997139-00

PATIENT
  Age: 63 Year
  Sex: Female

DRUGS (1)
  1. HUMIRA [Suspect]
     Active Substance: ADALIMUMAB
     Indication: RHEUMATOID ARTHRITIS
     Route: 058

REACTIONS (9)
  - Osteoarthritis [Unknown]
  - Joint injury [Unknown]
  - Arthralgia [Recovering/Resolving]
  - Sleep apnoea syndrome [Unknown]
  - Arthritis [Unknown]
  - Chondropathy [Unknown]
  - Gait disturbance [Unknown]
  - Arthropathy [Unknown]
  - Asthma [Unknown]

NARRATIVE: CASE EVENT DATE: 201911
